FAERS Safety Report 5779980-8 (Version None)
Quarter: 2008Q2

REPORT INFORMATION
  Report Type: 
  Country: None (occurrence: None)
  Receive Date: 20080620
  Receipt Date: 20080611
  Transmission Date: 20081010
  Serious: Yes (Hospitalization)
  Sender: FDA-Public Use
  Company Number: JP-JNJFOC-20080603844

PATIENT
  Sex: Female

DRUGS (9)
  1. RISPERDAL [Suspect]
     Indication: DELUSION
     Route: 048
  2. RISPERDAL [Suspect]
     Indication: HALLUCINATION
     Route: 048
  3. PERPHENAZINE [Suspect]
     Indication: DELUSION
     Route: 048
  4. PERPHENAZINE [Suspect]
     Indication: HALLUCINATION
     Route: 048
  5. BROTIZOLAM [Suspect]
     Indication: INSOMNIA
     Route: 048
  6. FLUNITRAZEPAM [Suspect]
     Indication: INSOMNIA
     Route: 048
  7. BIPERIDEN HYDROCHLORIDE TAB [Suspect]
     Indication: DRUG USE FOR UNKNOWN INDICATION
  8. SULPIRIDE [Suspect]
     Indication: DRUG USE FOR UNKNOWN INDICATION
  9. HALOPERIDOL [Suspect]
     Indication: DRUG USE FOR UNKNOWN INDICATION

REACTIONS (3)
  - DRUG EXPOSURE DURING PREGNANCY [None]
  - PSYCHIATRIC SYMPTOM [None]
  - RESTLESSNESS [None]
